FAERS Safety Report 18441064 (Version 1)
Quarter: 2020Q4

REPORT INFORMATION
  Report Type: Spontaneous
  Country: JP (occurrence: JP)
  Receive Date: 20201029
  Receipt Date: 20201029
  Transmission Date: 20210114
  Serious: Yes (Other)
  Sender: FDA-Public Use
  Company Number: JP-STRIDES ARCOLAB LIMITED-2020SP013029

PATIENT

DRUGS (1)
  1. TRIAMCINOLONE ACETONIDE. [Suspect]
     Active Substance: TRIAMCINOLONE ACETONIDE
     Indication: SCAR
     Dosage: 40 MILLIGRAM PER MILLILITRE, SINGLE
     Route: 030

REACTIONS (2)
  - Spondylitis [Recovered/Resolved]
  - Off label use [Unknown]
